FAERS Safety Report 8095257-2 (Version None)
Quarter: 2012Q1

REPORT INFORMATION
  Report Type: 
  Country: None (occurrence: None)
  Receive Date: 20120129
  Receipt Date: 20111215
  Transmission Date: 20120608
  Serious: No
  Sender: FDA-Public Use
  Company Number: US-ABBOTT-11P-163-0884623-00

PATIENT
  Sex: Male
  Weight: 147.1 kg

DRUGS (7)
  1. OXYBUTYNIN [Concomitant]
     Indication: GASTRIC DISORDER
  2. HUMIRA [Suspect]
     Indication: PSORIASIS
     Route: 058
  3. HUMIRA [Suspect]
     Indication: PSORIATIC ARTHROPATHY
  4. SULFASALAZINE [Concomitant]
     Indication: PSORIATIC ARTHROPATHY
  5. HYDROCHLOROTHIAZIDE [Concomitant]
     Indication: SWELLING
  6. HYDROCODONE BITARTRATE [Concomitant]
     Indication: PAIN
  7. LEFLUNOMIDE [Concomitant]
     Indication: PSORIATIC ARTHROPATHY
     Dates: start: 20111001

REACTIONS (3)
  - SKIN EXFOLIATION [None]
  - HEPATIC ENZYME INCREASED [None]
  - DRUG EFFECT DECREASED [None]
